FAERS Safety Report 6123642-4 (Version None)
Quarter: 2009Q1

REPORT INFORMATION
  Report Type: 
  Country: None (occurrence: None)
  Receive Date: 20090317
  Receipt Date: 20090317
  Transmission Date: 20090719
  Serious: Yes (Hospitalization)
  Sender: FDA-Public Use
  Company Number: None

PATIENT
  Sex: Male
  Weight: 20 kg

DRUGS (1)
  1. CELLCEPT [Suspect]
     Indication: FACTOR VIII INHIBITION
     Dosage: 250 MG BID PO
     Route: 048
     Dates: start: 20080601, end: 20080901

REACTIONS (5)
  - INCORRECT DOSE ADMINISTERED [None]
  - MEDICATION ERROR [None]
  - NEUTROPENIA [None]
  - PYREXIA [None]
  - TREATMENT NONCOMPLIANCE [None]
